FAERS Safety Report 8275171-X (Version None)
Quarter: 2012Q2

REPORT INFORMATION
  Report Type: 
  Country: None (occurrence: None)
  Receive Date: 20120411
  Receipt Date: 20120404
  Transmission Date: 20120825
  Serious: Yes (Other)
  Sender: FDA-Public Use
  Company Number: PHHY2012GB029171

PATIENT
  Age: 49 Year
  Sex: Female
  Weight: 70 kg

DRUGS (11)
  1. GRANISETRON [Concomitant]
     Dosage: 1 MG, BID
     Route: 048
  2. PACLITAXEL [Suspect]
     Indication: BREAST CANCER
     Dosage: 315 MG (ONCE IN TWO WEEKS)
     Route: 042
     Dates: start: 20110524
  3. CHLORPHENIRAMINE MALEATE [Concomitant]
     Dosage: 10 MG, UNK
     Route: 042
  4. DOMPERIDONE [Concomitant]
     Dosage: 20 MG, UNK
     Route: 048
  5. DEXAMETHASONE [Concomitant]
     Dosage: 20 MG, UNK
     Route: 042
  6. DEXAMETHASONE [Concomitant]
     Dosage: 4 MG, BID
     Route: 048
  7. DOCUSATE [Concomitant]
     Route: 048
  8. PEGFILGRASTIM [Concomitant]
     Dosage: 6 MG, UNK
     Route: 058
  9. RANITIDINE [Concomitant]
     Dosage: 50 MG, UNK
     Route: 042
  10. BIOTENE [Concomitant]
     Dosage: 15 MG, UNK
  11. PACLITAXEL [Suspect]
     Dosage: 300 MG (ONCE ON TWO WEEKS)
     Dates: end: 20110705

REACTIONS (4)
  - CHEST DISCOMFORT [None]
  - DYSPNOEA [None]
  - CHEST PAIN [None]
  - FATIGUE [None]
